FAERS Safety Report 24134271 (Version 1)
Quarter: 2024Q3

REPORT INFORMATION
  Report Type: Report from Study
  Country: US (occurrence: US)
  Receive Date: 20240725
  Receipt Date: 20240725
  Transmission Date: 20241017
  Serious: Yes (Other)
  Sender: ABBVIE
  Company Number: US-ABBVIE-5847883

PATIENT
  Sex: Female

DRUGS (3)
  1. LINZESS [Suspect]
     Active Substance: LINACLOTIDE
     Indication: Irritable bowel syndrome
     Route: 048
     Dates: start: 2010
  2. UBRELVY [Suspect]
     Active Substance: UBROGEPANT
     Indication: Migraine
     Route: 048
     Dates: start: 2010
  3. VRAYLAR [Suspect]
     Active Substance: CARIPRAZINE
     Indication: Affective disorder
     Route: 048
     Dates: start: 2010

REACTIONS (1)
  - Tongue neoplasm malignant stage unspecified [Recovering/Resolving]
